FAERS Safety Report 7220029-8 (Version None)
Quarter: 2011Q1

REPORT INFORMATION
  Report Type: 
  Country: None (occurrence: None)
  Receive Date: 20110111
  Receipt Date: 20101222
  Transmission Date: 20110831
  Serious: Yes (Hospitalization, Congenital Anomaly)
  Sender: FDA-Public Use
  Company Number: A0662920A

PATIENT
  Sex: Male
  Weight: 1.9 kg

DRUGS (11)
  1. DURICEF [Concomitant]
     Dates: start: 20041101
  2. XANAX [Concomitant]
     Dates: start: 20030101, end: 20040701
  3. INSULIN [Concomitant]
     Indication: DIABETES MELLITUS
  4. ANTIBIOTICS [Concomitant]
  5. PHENERGAN [Concomitant]
  6. LORTAB [Concomitant]
     Dates: start: 20041101
  7. ZOFRAN [Concomitant]
  8. REGLAN [Concomitant]
  9. PROTONIX [Concomitant]
  10. SOMA [Concomitant]
     Dates: start: 20020101, end: 20050101
  11. PAXIL [Suspect]
     Indication: ANXIETY
     Dosage: 20MG PER DAY
     Dates: start: 20040701, end: 20040901

REACTIONS (8)
  - OBSTRUCTIVE AIRWAYS DISORDER [None]
  - PULMONARY VALVE STENOSIS [None]
  - VENTRICULAR SEPTAL DEFECT [None]
  - HEART VALVE INCOMPETENCE [None]
  - RESPIRATORY FAILURE [None]
  - CARDIAC FAILURE [None]
  - DRUG EXPOSURE DURING PREGNANCY [None]
  - BUNDLE BRANCH BLOCK RIGHT [None]
